FAERS Safety Report 6410189-0 (Version None)
Quarter: 2009Q4

REPORT INFORMATION
  Report Type: 
  Country: None (occurrence: None)
  Receive Date: 20091022
  Receipt Date: 20080227
  Transmission Date: 20100525
  Serious: Yes (Hospitalization, Other)
  Sender: FDA-Public Use
  Company Number: PHEH2008US04114

PATIENT
  Sex: Male
  Weight: 13.605 kg

DRUGS (2)
  1. EXJADE [Suspect]
     Indication: IRON OVERLOAD
     Dosage: 500 MG, QHS
     Route: 048
     Dates: start: 20061031, end: 20070121
  2. EXJADE [Suspect]
     Indication: THALASSAEMIA
     Dosage: 500 MG, QD
     Route: 048
     Dates: start: 20070122, end: 20080116

REACTIONS (18)
  - ABNORMAL BEHAVIOUR [None]
  - ALANINE AMINOTRANSFERASE INCREASED [None]
  - AMMONIA INCREASED [None]
  - ASPARTATE AMINOTRANSFERASE INCREASED [None]
  - BIOPSY LIVER ABNORMAL [None]
  - BLOOD ALKALINE PHOSPHATASE INCREASED [None]
  - BLOOD BILIRUBIN INCREASED [None]
  - BLOOD LACTATE DEHYDROGENASE INCREASED [None]
  - GAMMA-GLUTAMYLTRANSFERASE INCREASED [None]
  - HAEMOGLOBIN DECREASED [None]
  - HAEMOSIDEROSIS [None]
  - HEPATIC FIBROSIS [None]
  - HEPATITIS [None]
  - HEPATOTOXICITY [None]
  - JAUNDICE [None]
  - LIVER DISORDER [None]
  - MENTAL STATUS CHANGES [None]
  - PLATELET COUNT DECREASED [None]
